FAERS Safety Report 5355837-1 (Version None)
Quarter: 2007Q2

REPORT INFORMATION
  Report Type: 
  Country: None (occurrence: None)
  Receive Date: 20070611
  Receipt Date: 20070611
  Transmission Date: 20071010
  Serious: Yes (Other)
  Sender: FDA-Public Use
  Company Number: None

PATIENT
  Age: 43 Year
  Sex: Female
  Weight: 83.9154 kg

DRUGS (1)
  1. CAPSAICIN CREME  0.1% -HIGH POTENCY  CVS BRAND [Suspect]
     Indication: BACK PAIN
     Dosage: TOP
     Route: 061
     Dates: start: 20070519, end: 20070519

REACTIONS (2)
  - BURNING SENSATION [None]
  - ERYTHEMA [None]
